FAERS Safety Report 10920064 (Version 1)
Quarter: 2015Q1

REPORT INFORMATION
  Report Type: Report from Study
  Country: US (occurrence: US)
  Receive Date: 20150317
  Receipt Date: 20150317
  Transmission Date: 20150721
  Serious: Yes (Other)
  Sender: FDA-Public Use
  Company Number: US-ACCORD-029320

PATIENT
  Age: 42 Year

DRUGS (1)
  1. MITOMYCIN. [Suspect]
     Active Substance: MITOMYCIN
     Indication: ADJUVANT THERAPY
     Dosage: INTRAOPERATIVE/3 MIN TO SCLERA

REACTIONS (3)
  - Corneal deposits [Unknown]
  - Scleromalacia [Unknown]
  - Diplopia [Unknown]
